FAERS Safety Report 7350085-8 (Version None)
Quarter: 2011Q1

REPORT INFORMATION
  Report Type: 
  Country: None (occurrence: None)
  Receive Date: 20110314
  Receipt Date: 20110303
  Transmission Date: 20110831
  Serious: Yes (Other)
  Sender: FDA-Public Use
  Company Number: A0877540A

PATIENT
  Age: 43 Year
  Sex: Male

DRUGS (2)
  1. AVANDIA [Suspect]
     Dosage: 4MG TWICE PER DAY
     Route: 048
     Dates: start: 20000401, end: 20070101
  2. ROSIGLITAZONE MALEATE [Suspect]
     Dosage: 4MG TWICE PER DAY
     Route: 048
     Dates: end: 20070101

REACTIONS (1)
  - MYOCARDIAL INFARCTION [None]
